FAERS Safety Report 21060833 (Version 2)
Quarter: 2022Q3

REPORT INFORMATION
  Report Type: Spontaneous
  Country: DE (occurrence: DE)
  Receive Date: 20220709
  Receipt Date: 20220820
  Transmission Date: 20221027
  Serious: Yes (Other)
  Sender: FDA-Public Use
  Company Number: DE-Hikma Pharmaceuticals-DE-H14001-22-01218

PATIENT
  Age: 65 Year
  Sex: Male
  Weight: 67.4 kg

DRUGS (8)
  1. OXALIPLATIN [Suspect]
     Active Substance: OXALIPLATIN
     Indication: Oesophageal carcinoma
     Dosage: FREQUENCY TIME: 2 WEEKS, UNIT DOSE: 120 MG, DURATION: 245 DAYS
     Route: 065
     Dates: start: 20210824, end: 20220426
  2. LEUCOVORIN [Suspect]
     Active Substance: LEUCOVORIN
     Indication: Adverse event
     Dosage: UNKNOWN, FREQUENCY TIME: 2 WEEKS, DURATION: 245 DAYS
     Dates: start: 20210824, end: 20220426
  3. LEUCOVORIN [Suspect]
     Active Substance: LEUCOVORIN
     Dosage: UNIT DOSE: 282 MG, DURATION: 245 DAYS
     Dates: start: 20220426, end: 20220426
  4. DOCETAXEL [Suspect]
     Active Substance: DOCETAXEL
     Indication: Oesophageal carcinoma
     Dosage: FREQUENCY TIME: 2 WEEKS, UNIT DOSE: 53 MG, DURATION: 245 DAYS
     Dates: start: 20210824, end: 20220426
  5. FLUOROURACIL [Suspect]
     Active Substance: FLUOROURACIL
     Indication: Oesophageal carcinoma
     Dosage: UNKNOWN, FREQUENCY TIME: 2 WEEKS, DURATION: 245 DAYS
     Route: 065
     Dates: start: 20210824, end: 20220426
  6. FLUOROURACIL [Suspect]
     Active Substance: FLUOROURACIL
     Dosage: UNKNOWN, FREQUENCY TIME: 2 WEEKS, DURATION: 245 DAYS
     Route: 065
  7. FLUOROURACIL [Suspect]
     Active Substance: FLUOROURACIL
     Dosage: UNKNOWN, FREQUENCY TIME: 2 WEEKS, DURATION: 245 DAYS
     Route: 065
     Dates: start: 20210824, end: 20220426
  8. NIVOLUMAB [Concomitant]
     Active Substance: NIVOLUMAB
     Indication: Immunochemotherapy
     Dosage: FREQUENCY TIME: 2 WEEKS, UNIT DOSE: 240 MG
     Dates: start: 20211110

REACTIONS (4)
  - Tachycardia [Recovered/Resolved]
  - Chills [Recovering/Resolving]
  - Oxygen saturation decreased [Recovered/Resolved]
  - Body temperature increased [Recovered/Resolved]

NARRATIVE: CASE EVENT DATE: 20220426
